FAERS Safety Report 11627538 (Version 1)
Quarter: 2015Q4

REPORT INFORMATION
  Report Type: Spontaneous
  Country: US (occurrence: US)
  Receive Date: 20151014
  Receipt Date: 20151014
  Transmission Date: 20160304
  Serious: No
  Sender: FDA-Public Use
  Company Number: US-PAR PHARMACEUTICAL, INC-2015SCPR014082

PATIENT

DRUGS (2)
  1. QUESTRAN [Suspect]
     Active Substance: CHOLESTYRAMINE
     Indication: HYPERCHOLIA
     Dosage: 2 PACKETS, / DAY
     Route: 048
  2. EVISTA [Concomitant]
     Active Substance: RALOXIFENE HYDROCHLORIDE
     Indication: PRODUCT USED FOR UNKNOWN INDICATION
     Dosage: 1 DF, / DAY
     Route: 048

REACTIONS (1)
  - Product use issue [Unknown]
